FAERS Safety Report 13532518 (Version 1)
Quarter: 2017Q2

REPORT INFORMATION
  Report Type: Spontaneous
  Country: FR (occurrence: FR)
  Receive Date: 20170510
  Receipt Date: 20170510
  Transmission Date: 20170830
  Serious: Yes (Hospitalization)
  Sender: FDA-Public Use
  Company Number: FR-GLAXOSMITHKLINE-FR2017GSK039724

PATIENT
  Age: 63 Year
  Sex: Female

DRUGS (2)
  1. VALACICLOVIR [Suspect]
     Active Substance: VALACYCLOVIR HYDROCHLORIDE
     Indication: PROPHYLAXIS
     Dosage: 1 G, QD
  2. METHOTREXATE. [Suspect]
     Active Substance: METHOTREXATE
     Indication: RHEUMATOID ARTHRITIS
     Dosage: 25 MG, WE

REACTIONS (7)
  - Product use in unapproved indication [Unknown]
  - Arthritis viral [Recovering/Resolving]
  - Varicella zoster virus infection [Recovering/Resolving]
  - Rash [Recovering/Resolving]
  - Varicella virus test positive [Unknown]
  - Rash vesicular [Recovering/Resolving]
  - Arthralgia [Recovering/Resolving]
